FAERS Safety Report 9804842 (Version 1)
Quarter: 2014Q1

REPORT INFORMATION
  Report Type: Spontaneous
  Country: FR (occurrence: FR)
  Receive Date: 20140108
  Receipt Date: 20140108
  Transmission Date: 20141002
  Serious: Yes (Hospitalization, Other)
  Sender: FDA-Public Use
  Company Number: FR-BAXTER-2013BAX053800

PATIENT
  Age: 79 Year
  Sex: Male
  Weight: 89 kg

DRUGS (7)
  1. METRONIDAZOLE BAXTER 0,5 POUR CENT, SOLUTION INJECTABLE EN POCHE [Suspect]
     Indication: ANTIBIOTIC THERAPY
     Route: 042
     Dates: start: 20131201, end: 20131202
  2. AMOXICILLINE/ACIDE CLAVULANIQUE [Suspect]
     Indication: LUNG DISORDER
     Route: 048
     Dates: start: 20131202, end: 20131213
  3. AXEPIM [Suspect]
     Indication: ANTIBIOTIC THERAPY
     Route: 065
     Dates: start: 20131201, end: 20131202
  4. EZETROL [Concomitant]
     Indication: PRODUCT USED FOR UNKNOWN INDICATION
     Dosage: ON THE EVENING
     Route: 048
  5. SEROPLEX [Concomitant]
     Indication: PRODUCT USED FOR UNKNOWN INDICATION
     Dosage: MORNING
     Route: 048
  6. CO-RENITEC [Concomitant]
     Indication: PRODUCT USED FOR UNKNOWN INDICATION
     Dosage: MORNING
     Route: 048
  7. KARDEGIC [Concomitant]
     Indication: PRODUCT USED FOR UNKNOWN INDICATION
     Dosage: 1 UNIT AT LUNCH
     Route: 048

REACTIONS (8)
  - Pancreatitis acute [Recovering/Resolving]
  - Lung disorder [Unknown]
  - Abdominal pain [Recovered/Resolved]
  - Abdominal distension [Unknown]
  - Hyperplastic cholecystopathy [Unknown]
  - Cell death [Unknown]
  - Cholestasis [Unknown]
  - Liver disorder [Unknown]
